FAERS Safety Report 12231154 (Version 2)
Quarter: 2018Q4

REPORT INFORMATION
  Report Type: Spontaneous
  Country: IT (occurrence: IT)
  Receive Date: 20160401
  Receipt Date: 20181228
  Transmission Date: 20190204
  Serious: Yes (Other)
  Sender: FDA-Public Use
  Company Number: IT-MYLANLABS-2016M1013679

PATIENT
  Age: 42 Year
  Sex: Male

DRUGS (7)
  1. FLUOROURACIL. [Suspect]
     Active Substance: FLUOROURACIL
     Dosage: 850 MILLIGRAM(S)/SQ. METER, ADMINISTERED ON DAY 2 (7
     Route: 042
  2. C1-INHIBITOR, PLASMA DERIVED [Concomitant]
     Indication: PROPHYLAXIS
     Dosage: 100MILLILITRE, ADMINISTERED EVERY WEEK PRIOR TO
     Route: 042
  3. FOLINIC ACID [Suspect]
     Active Substance: LEUCOVORIN
     Indication: RECTAL ADENOCARCINOMA
     Dosage: 250MG, ADMINISTERED ON DAY 2 (7
     Route: 042
  4. BERINERT [Concomitant]
     Active Substance: HUMAN C1-ESTERASE INHIBITOR
     Indication: RECTAL CANCER STAGE III
     Dosage: 1000 IU EVERY WEEK DURING WHOLE TREATMENT.
     Route: 065
  5. FLUOROURACIL. [Suspect]
     Active Substance: FLUOROURACIL
     Indication: RECTAL CANCER STAGE III
     Dosage: 300 MILLIGRAM(S)/SQ. METER, RECEIVED 5 SUCH
     Route: 042
  6. FLUOROURACIL. [Suspect]
     Active Substance: FLUOROURACIL
     Dosage: 20MG, RECEIVED 5 SUCH
     Route: 042
  7. OXALIPLATIN. [Suspect]
     Active Substance: OXALIPLATIN
     Indication: RECTAL CANCER STAGE III
     Dosage: 85 MILLIGRAM(S)/SQ. METER, ADMINISTERED ON DAY 1 (7
     Route: 065

REACTIONS (5)
  - Thrombocytopenia [Unknown]
  - Condition aggravated [Recovered/Resolved]
  - Hereditary angioedema [Recovered/Resolved]
  - Neuropathy peripheral [Unknown]
  - Neutropenia [Unknown]
